FAERS Safety Report 23475350 (Version 1)
Quarter: 2024Q1

REPORT INFORMATION
  Report Type: Report from Study
  Country: US (occurrence: US)
  Receive Date: 20240204
  Receipt Date: 20240204
  Transmission Date: 20240409
  Serious: No
  Sender: FDA-Public Use
  Company Number: US-EXELIXIS-CABO-23059423

PATIENT
  Sex: Female

DRUGS (2)
  1. CABOMETYX [Suspect]
     Active Substance: CABOZANTINIB S-MALATE
     Indication: Malignant neoplasm of choroid
     Dosage: 40 MG
  2. OPDIVO [Concomitant]
     Active Substance: NIVOLUMAB

REACTIONS (3)
  - Adverse drug reaction [Unknown]
  - Liver disorder [Unknown]
  - Off label use [Unknown]
